FAERS Safety Report 11232715 (Version 2)
Quarter: 2015Q3

REPORT INFORMATION
  Report Type: Spontaneous
  Country: FI (occurrence: FI)
  Receive Date: 20150701
  Receipt Date: 20150713
  Transmission Date: 20151125
  Serious: Yes (Other)
  Sender: FDA-Public Use
  Company Number: FI-ELI_LILLY_AND_COMPANY-FI201506008744

PATIENT
  Sex: Male

DRUGS (2)
  1. ZYPADHERA [Suspect]
     Active Substance: OLANZAPINE PAMOATE
     Indication: PRODUCT USED FOR UNKNOWN INDICATION
     Dosage: 300 MG, EVERY TWO WEEKS
     Route: 030
     Dates: start: 2014, end: 201412
  2. ZYPADHERA [Suspect]
     Active Substance: OLANZAPINE PAMOATE
     Dosage: 210 MG, EVERY TWO WEEKS
     Route: 030
     Dates: start: 201412, end: 201502

REACTIONS (3)
  - Muscle twitching [Recovered/Resolved]
  - Akathisia [Recovering/Resolving]
  - Dystonia [Recovering/Resolving]
